FAERS Safety Report 9750228 (Version 3)
Quarter: 2014Q1

REPORT INFORMATION
  Report Type: Spontaneous
  Country: GR (occurrence: GR)
  Receive Date: 20131212
  Receipt Date: 20140217
  Transmission Date: 20141002
  Serious: Yes (Other)
  Sender: FDA-Public Use
  Company Number: GR-GLAXOSMITHKLINE-B0951958A

PATIENT
  Age: 60 Year
  Sex: Male

DRUGS (1)
  1. REQUIP XL [Suspect]
     Indication: PRODUCT USED FOR UNKNOWN INDICATION
     Dosage: 8MG UNKNOWN
     Route: 048
     Dates: start: 2009

REACTIONS (3)
  - Suicidal ideation [Recovered/Resolved]
  - Gambling [Recovered/Resolved]
  - Sexual dysfunction [Recovered/Resolved]
